FAERS Safety Report 9216580 (Version 1)
Quarter: 2013Q2

REPORT INFORMATION
  Report Type: Spontaneous
  Country: US (occurrence: US)
  Receive Date: 20130408
  Receipt Date: 20130408
  Transmission Date: 20140414
  Serious: Yes (Hospitalization)
  Sender: FDA-Public Use
  Company Number: US-ELI_LILLY_AND_COMPANY-US201304000203

PATIENT
  Sex: Male

DRUGS (3)
  1. HUMALOG LISPRO [Suspect]
     Indication: TYPE 2 DIABETES MELLITUS
     Dosage: 30 U, BID
  2. HUMALOG LISPRO [Suspect]
     Dosage: UNK, PRN
  3. LEVEMIR [Concomitant]

REACTIONS (4)
  - Joint injury [Unknown]
  - Fall [Unknown]
  - Injection site pain [Unknown]
  - Intentional drug misuse [Not Recovered/Not Resolved]
